FAERS Safety Report 8516160-7 (Version None)
Quarter: 2012Q3

REPORT INFORMATION
  Report Type: 
  Country: None (occurrence: None)
  Receive Date: 20120717
  Receipt Date: 20120709
  Transmission Date: 20120928
  Serious: Yes (Other)
  Sender: FDA-Public Use
  Company Number: US-BAYER-200937685NA

PATIENT
  Age: 45 Year
  Sex: Female
  Weight: 135 kg

DRUGS (21)
  1. PROTAMINE SULFATE [Concomitant]
     Dosage: 50MG
     Route: 042
     Dates: start: 20040312, end: 20040312
  2. INSULIN [Concomitant]
     Dosage: 2UNITS PER HOUR
     Route: 042
     Dates: start: 20040312, end: 20040312
  3. ESTRACE [Concomitant]
     Dosage: 2 MG, QD
  4. PROTONIX [Concomitant]
     Dosage: 40 MG, QD
     Route: 048
  5. LIPITOR [Concomitant]
     Route: 048
  6. ZOLOFT [Concomitant]
     Dosage: 200 MG, UNK
     Route: 048
  7. ENALAPRIL MALEATE [Concomitant]
     Dosage: 10 MG, QD
     Route: 048
  8. RED BLOOD CELLS [Concomitant]
     Dosage: 2 UNITS
     Dates: start: 20040312
  9. PREDNISONE [Concomitant]
     Dosage: 10 MG, QD
     Route: 048
  10. HUMALOG [Concomitant]
     Dosage: 45 U, UNK
     Route: 058
  11. REGLAN [Concomitant]
     Dosage: 2.5 MG, QD
     Route: 048
  12. AVANDIA [Concomitant]
     Dosage: 8 MG, QD
     Route: 048
  13. TRASYLOL [Suspect]
     Indication: CORONARY ARTERY BYPASS
     Dosage: APROTININ PER PROTOCOL
     Route: 042
     Dates: start: 20040312, end: 20040312
  14. SANDIMMUNE [Concomitant]
     Dosage: 400 MG, UNK
     Route: 048
  15. ASPIRIN [Concomitant]
     Dosage: 325 MG, QD
     Route: 048
  16. FUROSEMIDE [Concomitant]
     Dosage: 40 MG, QD
     Route: 048
  17. HEPARIN [Concomitant]
     Dosage: 13,000UNITS
     Route: 042
     Dates: start: 20040312, end: 20040312
  18. LANTUS [Concomitant]
     Dosage: 45 U, QD
     Route: 058
  19. MUCOMYST [Concomitant]
     Indication: CATHETERISATION CARDIAC
     Dosage: UNK
     Dates: start: 20040223
  20. ATENOLOL [Concomitant]
     Dosage: UNK
     Route: 048
     Dates: start: 19940101
  21. CYCLOSPORINE [Concomitant]
     Dosage: 400 MG, QD
     Route: 048

REACTIONS (5)
  - RENAL FAILURE [None]
  - RENAL FAILURE ACUTE [None]
  - INJURY [None]
  - PAIN [None]
  - UNEVALUABLE EVENT [None]
